FAERS Safety Report 7618877-5 (Version None)
Quarter: 2011Q3

REPORT INFORMATION
  Report Type: 
  Country: None (occurrence: None)
  Receive Date: 20110718
  Receipt Date: 20110708
  Transmission Date: 20111222
  Serious: Yes (Hospitalization, Other)
  Sender: FDA-Public Use
  Company Number: US-BAXTER-2011BH020340

PATIENT
  Sex: Female

DRUGS (1)
  1. DIANEAL [Suspect]
     Indication: PERITONEAL DIALYSIS
     Route: 065
     Dates: end: 20110101

REACTIONS (3)
  - CLOSTRIDIAL INFECTION [None]
  - PERITONEAL DIALYSIS COMPLICATION [None]
  - PERITONITIS BACTERIAL [None]
